FAERS Safety Report 25482180 (Version 1)
Quarter: 2025Q2

REPORT INFORMATION
  Report Type: Spontaneous
  Country: JP (occurrence: JP)
  Receive Date: 20250626
  Receipt Date: 20250626
  Transmission Date: 20250717
  Serious: Yes (Death)
  Sender: SYMOGEN
  Company Number: JP-PARTNER THERAPEUTICS-2025PTX00054

PATIENT

DRUGS (1)
  1. SARGRAMOSTIM [Suspect]
     Active Substance: SARGRAMOSTIM
     Indication: Alveolar proteinosis
     Dosage: 125 ?G, 12 HR

REACTIONS (1)
  - Death [Fatal]
